FAERS Safety Report 6577322-1 (Version None)
Quarter: 2010Q1

REPORT INFORMATION
  Report Type: 
  Country: None (occurrence: None)
  Receive Date: 20100210
  Receipt Date: 20100205
  Transmission Date: 20100710
  Serious: Yes (Death)
  Sender: FDA-Public Use
  Company Number: JP-GENENTECH-297741

PATIENT
  Sex: Male

DRUGS (1)
  1. GRTPA [Suspect]
     Indication: CEREBRAL INFARCTION
     Dosage: 24 MIU, SINGLE
     Route: 042
     Dates: start: 20100128, end: 20100128

REACTIONS (3)
  - AORTIC DISSECTION [None]
  - CARDIAC TAMPONADE [None]
  - HAEMORRHAGE [None]
